FAERS Safety Report 5006054-6 (Version None)
Quarter: 2006Q1

REPORT INFORMATION
  Report Type: 
  Country: None (occurrence: None)
  Receive Date: 20060328
  Receipt Date: 20050421
  Transmission Date: 20060701
  Serious: Yes (Other)
  Sender: FDA-Public Use
  Company Number: 17970

PATIENT
  Age: 14 Year
  Sex: Male

DRUGS (3)
  1. ADRIAMYCIN (DOXORUBICIN) INJ. USP 50MG/25ML [Suspect]
     Indication: ACUTE LYMPHOCYTIC LEUKAEMIA
     Dosage: 25MG/M2 /X1 / IV
     Route: 042
     Dates: start: 20050421
  2. EPINEPHRINE 0.3MG [Concomitant]
  3. SOLUMEDROL 40MG/IV [Concomitant]

REACTIONS (1)
  - ANAPHYLACTIC REACTION [None]
